FAERS Safety Report 8345951-0 (Version None)
Quarter: 2012Q2

REPORT INFORMATION
  Report Type: 
  Country: None (occurrence: None)
  Receive Date: 20120507
  Receipt Date: 20120502
  Transmission Date: 20120825
  Serious: Yes (Disabling)
  Sender: FDA-Public Use
  Company Number: 2012SP005230

PATIENT
  Age: 18 Year
  Sex: Male

DRUGS (6)
  1. AMPHOTERICIN B [Concomitant]
  2. XYLOCAINE [Concomitant]
  3. BOCEPREVIR (SCH-503034) [Suspect]
     Indication: HEPATITIS C
     Dosage: 800 MG;TID;PO
     Route: 048
     Dates: start: 20100203, end: 20101208
  4. ITRACONAZOLE [Concomitant]
  5. REBETOL [Suspect]
     Indication: HEPATITIS C
     Dosage: 200 MG;BID;PO
     Route: 048
     Dates: start: 20100106, end: 20101208
  6. PEGINTERFERON ALFA-2B [Suspect]
     Indication: HEPATITIS C
     Dosage: 150 MCG;QW;SC 107 MCG;QW
     Route: 058
     Dates: start: 20100108, end: 20101203

REACTIONS (2)
  - RETINAL DETACHMENT [None]
  - RETINITIS [None]
